FAERS Safety Report 21310306 (Version 1)
Quarter: 2022Q3

REPORT INFORMATION
  Report Type: Spontaneous
  Country: US (occurrence: US)
  Receive Date: 20220909
  Receipt Date: 20220909
  Transmission Date: 20221027
  Serious: No
  Sender: FDA-Public Use
  Company Number: US-GLAXOSMITHKLINE-USCH2022032197

PATIENT

DRUGS (2)
  1. VOLTAREN ARTHRITIS PAIN [Suspect]
     Active Substance: DICLOFENAC SODIUM
     Indication: Arthritis
     Dosage: UNK, QID
     Dates: start: 20220905
  2. ASPIRIN [Suspect]
     Active Substance: ASPIRIN
     Indication: Product used for unknown indication
     Dosage: UNK

REACTIONS (3)
  - Arthritis [Unknown]
  - Condition aggravated [Unknown]
  - Gait disturbance [Unknown]

NARRATIVE: CASE EVENT DATE: 20220906
